FAERS Safety Report 11510125 (Version 1)
Quarter: 2015Q3

REPORT INFORMATION
  Report Type: Spontaneous
  Country: US (occurrence: US)
  Receive Date: 20150915
  Receipt Date: 20150915
  Transmission Date: 20151125
  Serious: No
  Sender: FDA-Public Use
  Company Number: US-JNJFOC-20150604047

PATIENT
  Age: 70 Year
  Sex: Female
  Weight: 72.58 kg

DRUGS (4)
  1. TYLENOL EXTRA STRENGTH [Suspect]
     Active Substance: ACETAMINOPHEN
     Indication: ARTHRALGIA
     Route: 048
     Dates: start: 20150603, end: 20150603
  2. CHOLESTEROL MEDICATION NOS [Concomitant]
     Indication: BLOOD CHOLESTEROL INCREASED
     Route: 065
  3. ALLEGRA [Concomitant]
     Active Substance: FEXOFENADINE HYDROCHLORIDE
     Indication: MULTIPLE ALLERGIES
     Route: 065
  4. TIZANIDINE. [Concomitant]
     Active Substance: TIZANIDINE
     Indication: MUSCLE RELAXANT THERAPY
     Route: 065

REACTIONS (2)
  - Cough [Recovered/Resolved]
  - Product difficult to swallow [Recovered/Resolved]

NARRATIVE: CASE EVENT DATE: 20150603
